FAERS Safety Report 19430194 (Version 2)
Quarter: 2021Q3

REPORT INFORMATION
  Report Type: Report from Study
  Country: None (occurrence: AR)
  Receive Date: 20210618
  Receipt Date: 20210715
  Transmission Date: 20211014
  Serious: Yes (Hospitalization, Other)
  Sender: FDA-Public Use
  Company Number: AR-ABBVIE-21K-007-3953914-00

PATIENT
  Sex: Male

DRUGS (1)
  1. HUMIRA [Suspect]
     Active Substance: ADALIMUMAB
     Indication: RHEUMATOID ARTHRITIS
     Route: 058
     Dates: start: 20181105

REACTIONS (4)
  - Post-traumatic pain [Not Recovered/Not Resolved]
  - Clavicle fracture [Recovering/Resolving]
  - Accident [Unknown]
  - Hand fracture [Recovering/Resolving]
